FAERS Safety Report 11761702 (Version 1)
Quarter: 2015Q4

REPORT INFORMATION
  Report Type: Spontaneous
  Country: US (occurrence: US)
  Receive Date: 20151120
  Receipt Date: 20151120
  Transmission Date: 20160304
  Serious: Yes (Other)
  Sender: FDA-Public Use
  Company Number: US-ROXANE LABORATORIES, INC.-2015-RO-01929RO

PATIENT
  Age: 54 Year
  Sex: Male

DRUGS (6)
  1. DUREZOL [Suspect]
     Active Substance: DIFLUPREDNATE
     Route: 031
  2. ATROPINE. [Concomitant]
     Active Substance: ATROPINE
     Indication: FLAT ANTERIOR CHAMBER OF EYE
     Route: 061
  3. PREDNISONE. [Suspect]
     Active Substance: PREDNISONE
     Indication: FLAT ANTERIOR CHAMBER OF EYE
     Dosage: 60 MG
     Route: 048
  4. DEXAMETHASONE. [Concomitant]
     Active Substance: DEXAMETHASONE
     Indication: FLAT ANTERIOR CHAMBER OF EYE
     Route: 050
  5. PHENYLEPHRINE [Concomitant]
     Active Substance: PHENYLEPHRINE\PHENYLEPHRINE HYDROCHLORIDE
     Indication: FLAT ANTERIOR CHAMBER OF EYE
     Route: 061
  6. DUREZOL [Suspect]
     Active Substance: DIFLUPREDNATE
     Indication: FLAT ANTERIOR CHAMBER OF EYE
     Route: 031

REACTIONS (2)
  - Choroidal detachment [Recovered/Resolved]
  - Corneal oedema [Recovered/Resolved]
